FAERS Safety Report 5239862-7 (Version None)
Quarter: 2007Q1

REPORT INFORMATION
  Report Type: 
  Country: None (occurrence: None)
  Receive Date: 20070212
  Receipt Date: 20070125
  Transmission Date: 20070707
  Serious: Yes (Hospitalization)
  Sender: FDA-Public Use
  Company Number: 2007RR-05535

PATIENT
  Age: 75 Year
  Sex: Male

DRUGS (2)
  1. AMOXICILLIN [Suspect]
     Indication: WOUND INFECTION
     Dosage: 500 MG, TID, ORAL
     Route: 048
  2. FUCIDIN (FUSIDATE DIOLAMINE, FUSIDIC ACID, SODIUM FUSIDATE) [Suspect]
     Indication: WOUND INFECTION
     Dosage: 500 MG, TID, ORAL
     Route: 048

REACTIONS (3)
  - HEPATIC FUNCTION ABNORMAL [None]
  - JAUNDICE [None]
  - RENAL FAILURE ACUTE [None]
